FAERS Safety Report 10222222 (Version 2)
Quarter: 2014Q2

REPORT INFORMATION
  Report Type: Spontaneous
  Country: US (occurrence: US)
  Receive Date: 20140606
  Receipt Date: 20140630
  Transmission Date: 20141212
  Serious: Yes (Death)
  Sender: FDA-Public Use
  Company Number: US-GLAXOSMITHKLINE-A1074800A

PATIENT
  Age: 43 Year
  Sex: Female

DRUGS (11)
  1. ADVAIR [Suspect]
     Indication: DYSPNOEA
     Dosage: 1PUFF TWICE PER DAY
     Route: 055
     Dates: start: 201310, end: 2014
  2. PROVENTIL [Concomitant]
  3. UNSPECIFIED INHALER [Concomitant]
  4. IPRATROPIUM [Concomitant]
  5. NAPROXEN [Concomitant]
  6. REMERON [Concomitant]
  7. SEROQUEL XR [Concomitant]
  8. TRAMADOL [Concomitant]
  9. GABAPENTIN [Concomitant]
  10. HYDROXYZINE PAMOATE [Concomitant]
  11. DEPAKOTE ER [Concomitant]

REACTIONS (1)
  - Death [Fatal]
